FAERS Safety Report 17909591 (Version 3)
Quarter: 2020Q3

REPORT INFORMATION
  Report Type: Report from Study
  Country: US (occurrence: US)
  Receive Date: 20200617
  Receipt Date: 20200702
  Transmission Date: 20201103
  Serious: Yes (Hospitalization, Other)
  Sender: FDA-Public Use
  Company Number: US-ACTELION-A-NJ2020-206098

PATIENT
  Age: 64 Year
  Sex: Male

DRUGS (22)
  1. AZITHROMYCIN ANHYDROUS. [Concomitant]
     Active Substance: AZITHROMYCIN ANHYDROUS
  2. NITROSTAT [Concomitant]
     Active Substance: NITROGLYCERIN
  3. PREDNISONE. [Concomitant]
     Active Substance: PREDNISONE
  4. ASPIRIN 81 [Concomitant]
     Active Substance: ASPIRIN
  5. BUDESONIDE. [Concomitant]
     Active Substance: BUDESONIDE
  6. TERAZOSIN [Concomitant]
     Active Substance: TERAZOSIN HYDROCHLORIDE
  7. METFORMIN [METFORMIN HYDROCHLORIDE] [Concomitant]
     Active Substance: METFORMIN HYDROCHLORIDE
     Indication: ESSENTIAL HYPERTENSION
  8. OMEPRAZOLE. [Concomitant]
     Active Substance: OMEPRAZOLE
  9. ALBUTEROL HFA [Concomitant]
     Active Substance: ALBUTEROL SULFATE
  10. HUMALOG JUNIOR KWIKPEN [Concomitant]
     Active Substance: INSULIN LISPRO
  11. ELIQUIS [Concomitant]
     Active Substance: APIXABAN
  12. TOUJEO [Concomitant]
     Active Substance: INSULIN GLARGINE
  13. BUMETANIDE. [Concomitant]
     Active Substance: BUMETANIDE
  14. METOCLOPRAMIDE. [Concomitant]
     Active Substance: METOCLOPRAMIDE
  15. METOLAZONE. [Concomitant]
     Active Substance: METOLAZONE
  16. INSULIN LISPRO [Concomitant]
     Active Substance: INSULIN LISPRO
  17. MONTELUKAST [Concomitant]
     Active Substance: MONTELUKAST SODIUM
  18. ATORVASTATIN [Concomitant]
     Active Substance: ATORVASTATIN
  19. CLOPIDOGREL [Concomitant]
     Active Substance: CLOPIDOGREL BISULFATE
  20. ONDANSETRON HYDROCHLORIDE. [Concomitant]
     Active Substance: ONDANSETRON HYDROCHLORIDE
  21. OPSUMIT [Suspect]
     Active Substance: MACITENTAN
     Indication: PULMONARY ARTERIAL HYPERTENSION
     Dosage: 10 MG, QD
     Route: 048
     Dates: start: 2020, end: 20200606
  22. CARVEDILOL. [Concomitant]
     Active Substance: CARVEDILOL

REACTIONS (7)
  - Hospitalisation [Unknown]
  - Chest discomfort [Unknown]
  - Feeling abnormal [Unknown]
  - Tremor [Recovering/Resolving]
  - Chest pain [Unknown]
  - Vision blurred [Unknown]
  - Swelling face [Unknown]

NARRATIVE: CASE EVENT DATE: 20200606
